FAERS Safety Report 9920201 (Version 1)
Quarter: 2014Q1

REPORT INFORMATION
  Report Type: Spontaneous
  Country: BR (occurrence: BR)
  Receive Date: 20140224
  Receipt Date: 20140224
  Transmission Date: 20141002
  Serious: Yes (Other)
  Sender: FDA-Public Use
  Company Number: ALCN2014BR001163

PATIENT
  Age: 70 Year
  Sex: Female

DRUGS (1)
  1. CILODEX [Suspect]
     Indication: BLEPHARITIS
     Dosage: 1 UNK, UNK
     Route: 047

REACTIONS (2)
  - Visual field defect [Unknown]
  - Foreign body sensation in eyes [Unknown]
